FAERS Safety Report 6673425-1 (Version None)
Quarter: 2010Q2

REPORT INFORMATION
  Report Type: 
  Country: None (occurrence: None)
  Receive Date: 20100408
  Receipt Date: 20100327
  Transmission Date: 20101027
  Serious: Yes (Hospitalization, Other)
  Sender: FDA-Public Use
  Company Number: US-PFIZER INC-2010034799

PATIENT
  Sex: Female
  Weight: 136.07 kg

DRUGS (9)
  1. CHANTIX [Suspect]
     Dosage: UNK MG, UNK
     Route: 048
     Dates: start: 20090101, end: 20090101
  2. CHANTIX [Suspect]
     Dosage: UNK
     Dates: start: 20100316, end: 20100101
  3. LORAZEPAM [Concomitant]
     Indication: ANXIETY
     Dosage: 0.5 MG DAILY
     Dates: start: 20090101
  4. LORAZEPAM [Concomitant]
     Indication: IRRITABILITY
     Dosage: 0.5 MG, 2X/DAY
  5. LEVOTHYROXINE SODIUM [Concomitant]
     Dosage: 175 UG DAILY
  6. FLEXERIL [Concomitant]
     Dosage: 10 MG, 3X/DAY
  7. FUROSEMIDE [Concomitant]
     Dosage: 20 MG DAILY
  8. TRAMADOL [Concomitant]
     Dosage: 50 MG 4X/DAY AS NEEDED
  9. ALBUTEROL [Concomitant]
     Dosage: UNK

REACTIONS (4)
  - HEAD INJURY [None]
  - JOINT EFFUSION [None]
  - MEMORY IMPAIRMENT [None]
  - PSYCHIATRIC INVESTIGATION [None]
